FAERS Safety Report 12357506 (Version 1)
Quarter: 2016Q2

REPORT INFORMATION
  Report Type: Spontaneous
  Country: CH (occurrence: CH)
  Receive Date: 20160512
  Receipt Date: 20160512
  Transmission Date: 20160815
  Serious: Yes (Hospitalization)
  Sender: FDA-Public Use
  Company Number: CH-IGI LABORATORIES, INC.-1051994

PATIENT
  Age: 81 Year
  Sex: Male

DRUGS (13)
  1. STILNOX [Suspect]
     Active Substance: ZOLPIDEM TARTRATE
     Route: 065
     Dates: start: 201512, end: 20160203
  2. AMLODIPIN [Suspect]
     Active Substance: AMLODIPINE BESYLATE
     Route: 065
     Dates: start: 201601, end: 20160210
  3. VITAMIN D OIL WILD [Concomitant]
     Dates: start: 201601, end: 20160205
  4. NOPIL [Suspect]
     Active Substance: SULFAMETHOXAZOLE\TRIMETHOPRIM
     Route: 048
     Dates: start: 20151230, end: 20160205
  5. XYZAL [Suspect]
     Active Substance: LEVOCETIRIZINE DIHYDROCHLORIDE
     Route: 065
     Dates: start: 20151221, end: 20160203
  6. PREDNISON [Concomitant]
     Active Substance: PREDNISONE
     Dates: start: 20151201
  7. ALDACTONE [Suspect]
     Active Substance: SPIRONOLACTONE
     Route: 065
     Dates: start: 201601, end: 20160203
  8. ZANTAC [Suspect]
     Active Substance: RANITIDINE HYDROCHLORIDE
     Indication: PRODUCT USED FOR UNKNOWN INDICATION
     Route: 065
     Dates: start: 201601, end: 20160206
  9. PANTOZOL [Suspect]
     Active Substance: PANTOPRAZOLE SODIUM
     Route: 065
     Dates: start: 20151221, end: 20160203
  10. TRIATEC [Suspect]
     Active Substance: RAMIPRIL
     Route: 065
     Dates: start: 20151224, end: 20160210
  11. TAVOR (LORAZEPAM) [Suspect]
     Active Substance: LORAZEPAM
     Route: 065
     Dates: start: 201601, end: 20160203
  12. CALCIMAGON D3 [Concomitant]
     Active Substance: CALCIUM\CHOLECALCIFEROL
     Dates: start: 20151223, end: 20160205
  13. AUGMENTIN [Suspect]
     Active Substance: AMOXICILLIN\CLAVULANATE POTASSIUM
     Route: 065
     Dates: start: 20151230, end: 20160106

REACTIONS (1)
  - Drug-induced liver injury [Recovered/Resolved]

NARRATIVE: CASE EVENT DATE: 201602
